FAERS Safety Report 26127523 (Version 1)
Quarter: 2025Q4

REPORT INFORMATION
  Report Type: Spontaneous
  Country: US (occurrence: US)
  Receive Date: 20251205
  Receipt Date: 20251205
  Transmission Date: 20260118
  Serious: No
  Sender: SANDOZ
  Company Number: US-002147023-NVSC2024US181310

PATIENT
  Sex: Female

DRUGS (2)
  1. AMLODIPINE [Suspect]
     Active Substance: AMLODIPINE BESYLATE
     Indication: Hidradenitis
     Dosage: 10 MG
     Route: 048
  2. COSENTYX [Suspect]
     Active Substance: SECUKINUMAB
     Indication: Hidradenitis
     Dosage: UNK
     Route: 058

REACTIONS (9)
  - Ulcer [Unknown]
  - Blister [Unknown]
  - Infection [Unknown]
  - Haemorrhage [Unknown]
  - Abscess [Unknown]
  - Wound [Unknown]
  - Wound complication [Unknown]
  - Pain [Unknown]
  - Drug ineffective [Unknown]
